FAERS Safety Report 14242365 (Version 4)
Quarter: 2020Q1

REPORT INFORMATION
  Report Type: Spontaneous
  Country: US (occurrence: US)
  Receive Date: 20171201
  Receipt Date: 20200214
  Transmission Date: 20200409
  Serious: Yes (Hospitalization, Other)
  Sender: FDA-Public Use
  Company Number: US-PFIZER INC-2017073759

PATIENT
  Age: 78 Year
  Sex: Female
  Weight: 59 kg

DRUGS (14)
  1. IBRANCE [Suspect]
     Active Substance: PALBOCICLIB
     Dosage: 125 MG, CYCLIC (DAILY WITH FOOD FOR 21 DAYS FOLLOWED BY 7 DAYS OFF EVERY 28 DAY CYCLE)
     Route: 048
  2. VITAMIN B12 [Concomitant]
     Active Substance: CYANOCOBALAMIN
     Dosage: UNK
  3. POTASSIUM [Concomitant]
     Active Substance: POTASSIUM
     Dosage: UNK
     Dates: start: 2010
  4. VITAMIN D3 [Concomitant]
     Active Substance: CHOLECALCIFEROL
     Dosage: UNK
     Dates: start: 2010
  5. IPRATROPIUM BROMIDE. [Concomitant]
     Active Substance: IPRATROPIUM BROMIDE
     Dosage: UNK
  6. CALCIUM [Concomitant]
     Active Substance: CALCIUM
     Dosage: UNK
  7. TYLENOL [Concomitant]
     Active Substance: ACETAMINOPHEN
     Dosage: UNK
     Dates: start: 2010
  8. COQ10 [Concomitant]
     Active Substance: UBIDECARENONE
     Dosage: UNK
  9. ANASTROZOLE. [Concomitant]
     Active Substance: ANASTROZOLE
     Indication: BLOOD OESTROGEN
     Dosage: 1 MG, 1X/DAY(ONE DAILY)
     Dates: start: 201912
  10. VITAMIN C [Concomitant]
     Active Substance: ASCORBIC ACID
     Dosage: UNK
     Dates: start: 2010
  11. IBRANCE [Suspect]
     Active Substance: PALBOCICLIB
     Indication: BREAST CANCER METASTATIC
     Dosage: 125 MG, CYCLIC (DAILY WITH FOOD FOR 21 DAYS FOLLOWED BY 7 DAYS OFF EVERY 28 DAY CYCLE)
     Route: 048
     Dates: start: 2016, end: 20171117
  12. AYR [Concomitant]
     Dosage: UNK
     Route: 045
  13. VICODIN [Concomitant]
     Active Substance: ACETAMINOPHEN\HYDROCODONE BITARTRATE
     Dosage: UNK
  14. ZINC. [Concomitant]
     Active Substance: ZINC
     Dosage: UNK
     Dates: start: 2010

REACTIONS (3)
  - Dyspnoea [Unknown]
  - Pneumonia [Recovered/Resolved]
  - Sinusitis [Unknown]

NARRATIVE: CASE EVENT DATE: 20171119
